FAERS Safety Report 4991456-4 (Version None)
Quarter: 2006Q2

REPORT INFORMATION
  Report Type: 
  Country: None (occurrence: None)
  Receive Date: 20060501
  Receipt Date: 20060501
  Transmission Date: 20061013
  Serious: Yes (Life-Threatening, Hospitalization, Other)
  Sender: FDA-Public Use
  Company Number: None

PATIENT
  Age: 40 Year
  Sex: Female
  Weight: 127.0072 kg

DRUGS (1)
  1. MARINOL [Suspect]
     Indication: NAUSEA
     Dosage: ONE 5 MG TABLET    3X DAY BEFORE MEAL   PO
     Route: 048
     Dates: start: 20060213, end: 20060213

REACTIONS (8)
  - CONVULSION [None]
  - DISORIENTATION [None]
  - DYSKINESIA [None]
  - FOAMING AT MOUTH [None]
  - HALLUCINATION [None]
  - HEART RATE INCREASED [None]
  - MUSCLE TWITCHING [None]
  - TREMOR [None]
